FAERS Safety Report 14392441 (Version 3)
Quarter: 2018Q3

REPORT INFORMATION
  Report Type: Spontaneous
  Country: US (occurrence: US)
  Receive Date: 20180116
  Receipt Date: 20180904
  Transmission Date: 20181010
  Serious: Yes (Other)
  Sender: FDA-Public Use
  Company Number: US-PFIZER INC-2018017588

PATIENT
  Age: 59 Year
  Sex: Female
  Weight: 82 kg

DRUGS (166)
  1. PREVACID 24 HR [Suspect]
     Active Substance: LANSOPRAZOLE
     Dosage: UNK
     Route: 048
     Dates: start: 2017
  2. CLONIDINE HCL [Concomitant]
     Active Substance: CLONIDINE HYDROCHLORIDE
     Dosage: UNK
     Dates: start: 2010, end: 2015
  3. METFORMIN HCL [Concomitant]
     Active Substance: METFORMIN HYDROCHLORIDE
     Indication: DIABETES MELLITUS
     Dosage: UNK
     Dates: start: 2010, end: 2015
  4. LANTUS [Concomitant]
     Active Substance: INSULIN GLARGINE
     Indication: BLOOD INSULIN
     Dosage: UNK
     Dates: start: 2015, end: 2017
  5. AMOXICILLIN. [Concomitant]
     Active Substance: AMOXICILLIN
     Dosage: UNK
     Dates: start: 2016
  6. ELECTROLYTES [Concomitant]
     Active Substance: ELECTROLYTES NOS
     Indication: MINERAL SUPPLEMENTATION
     Dosage: UNK
     Dates: start: 2012
  7. LINZESS [Concomitant]
     Active Substance: LINACLOTIDE
     Indication: IRRITABLE BOWEL SYNDROME
     Dosage: UNK
     Dates: start: 2010, end: 2015
  8. NATEGLINIDE. [Concomitant]
     Active Substance: NATEGLINIDE
     Indication: DIABETES MELLITUS
     Dosage: UNK
     Dates: start: 2012
  9. CLONIDINE. [Concomitant]
     Active Substance: CLONIDINE
     Indication: HYPERTENSION
     Dosage: UNK
     Dates: start: 2015, end: 2017
  10. KLOR?CON [Concomitant]
     Active Substance: POTASSIUM CHLORIDE
     Dosage: UNK
     Dates: start: 2016, end: 2017
  11. ALENDRONATE [Concomitant]
     Active Substance: ALENDRONATE SODIUM
     Indication: BONE DISORDER
     Dosage: UNK
     Dates: start: 2015, end: 2017
  12. SUCRALFATE. [Concomitant]
     Active Substance: SUCRALFATE
     Indication: GASTROOESOPHAGEAL REFLUX DISEASE
     Dosage: UNK
     Dates: start: 2016
  13. GABAPENTIN. [Concomitant]
     Active Substance: GABAPENTIN
     Indication: NEURALGIA
     Dosage: UNK
     Dates: start: 2016, end: 2017
  14. MUCINEX [Concomitant]
     Active Substance: GUAIFENESIN
     Indication: NASAL CONGESTION
  15. POLY?HISTINE [Concomitant]
     Indication: ANTIALLERGIC THERAPY
     Dosage: UNK
     Dates: start: 2010, end: 2015
  16. CELECOXIB. [Concomitant]
     Active Substance: CELECOXIB
     Dosage: UNK
     Dates: start: 2010, end: 2015
  17. PROMETHAZINE ? CODEINE [Concomitant]
     Active Substance: CODEINE\PROMETHAZINE
     Indication: ANTITUSSIVE THERAPY
     Dosage: UNK
     Dates: start: 2015
  18. NORVASC [Concomitant]
     Active Substance: AMLODIPINE BESYLATE
     Dosage: UNK
     Dates: start: 2017
  19. PREVACID [Suspect]
     Active Substance: LANSOPRAZOLE
     Dosage: UNK
     Route: 048
  20. PANTOPRAZOLE [Suspect]
     Active Substance: PANTOPRAZOLE
     Indication: ABDOMINAL PAIN UPPER
     Dosage: UNK
     Dates: start: 2011, end: 2017
  21. NEXIUM [Suspect]
     Active Substance: ESOMEPRAZOLE MAGNESIUM
     Dosage: UNK
     Route: 048
     Dates: start: 2015, end: 2017
  22. FLUCONAZOLE. [Concomitant]
     Active Substance: FLUCONAZOLE
     Indication: FUNGAL INFECTION
     Dosage: UNK
     Dates: start: 2002, end: 2010
  23. SAVELLA [Concomitant]
     Active Substance: MILNACIPRAN HYDROCHLORIDE
     Indication: PAIN
     Dosage: UNK
     Dates: start: 2010, end: 2015
  24. CYMBALTA [Concomitant]
     Active Substance: DULOXETINE HYDROCHLORIDE
     Indication: ANXIETY
  25. LANTUS [Concomitant]
     Active Substance: INSULIN GLARGINE
     Indication: DIABETES MELLITUS
     Dosage: UNK
     Dates: start: 2010, end: 2015
  26. AMOXICILLIN. [Concomitant]
     Active Substance: AMOXICILLIN
     Indication: ANTIBIOTIC THERAPY
     Dosage: UNK
     Dates: start: 2010, end: 2015
  27. TRIAMCINOLONE ACETONIDE. [Concomitant]
     Active Substance: TRIAMCINOLONE ACETONIDE
     Indication: RASH
     Dosage: UNK
     Dates: start: 2012
  28. VIGAMOX [Concomitant]
     Active Substance: MOXIFLOXACIN HYDROCHLORIDE
     Indication: ANTIBIOTIC THERAPY
     Dosage: UNK
     Dates: start: 2010, end: 2015
  29. PAROXETINE. [Concomitant]
     Active Substance: PAROXETINE
     Indication: DEPRESSION
     Dosage: UNK
     Dates: start: 2015, end: 2017
  30. AMITRIPTYLINE [Concomitant]
     Active Substance: AMITRIPTYLINE
     Indication: ANTIDEPRESSANT THERAPY
     Dosage: UNK
     Dates: start: 2015, end: 2017
  31. PROLENSA [Concomitant]
     Active Substance: BROMFENAC SODIUM
     Dosage: UNK
     Dates: start: 2015, end: 2017
  32. HYDROCODONE [Concomitant]
     Active Substance: HYDROCODONE
     Indication: PAIN
     Dosage: UNK
     Dates: start: 2009
  33. SMZ?TMP [Concomitant]
     Active Substance: SULFAMETHOXAZOLE\TRIMETHOPRIM
     Indication: ANTIBIOTIC THERAPY
     Dosage: UNK
     Dates: start: 2002, end: 2010
  34. LORAZEPAM. [Concomitant]
     Active Substance: LORAZEPAM
     Indication: ANXIETY
     Dosage: UNK
     Dates: start: 2002, end: 2010
  35. DISODIUM FUMARATE [Concomitant]
     Active Substance: DISODIUM FUMARATE
     Indication: BLOOD IRON
     Dosage: UNK
     Dates: start: 2010, end: 2015
  36. CARISOPRODOL. [Concomitant]
     Active Substance: CARISOPRODOL
  37. TUSSIONEX [BROMHEXINE] [Concomitant]
  38. NEXIUM [Suspect]
     Active Substance: ESOMEPRAZOLE MAGNESIUM
     Indication: GASTROOESOPHAGEAL REFLUX DISEASE
     Dosage: UNK
     Dates: start: 2011
  39. FLUCONAZOLE. [Concomitant]
     Active Substance: FLUCONAZOLE
     Dosage: UNK
     Dates: start: 2010, end: 2015
  40. JANUVIA [Concomitant]
     Active Substance: SITAGLIPTIN PHOSPHATE
     Indication: DIABETES MELLITUS
     Dosage: UNK
     Dates: start: 2010, end: 2015
  41. GLIMEPIRIDE. [Concomitant]
     Active Substance: GLIMEPIRIDE
     Indication: DIABETES MELLITUS
     Dosage: UNK
     Dates: start: 2002, end: 2010
  42. PRAVASTATIN SODIUM. [Concomitant]
     Active Substance: PRAVASTATIN SODIUM
     Indication: BLOOD CHOLESTEROL ABNORMAL
     Dosage: UNK
     Dates: start: 2002, end: 2010
  43. AMOXICILLIN. [Concomitant]
     Active Substance: AMOXICILLIN
     Dosage: UNK
     Dates: start: 2015
  44. ETODOLAC. [Concomitant]
     Active Substance: ETODOLAC
     Dosage: UNK
  45. SPIRIVA [Concomitant]
     Active Substance: TIOTROPIUM BROMIDE MONOHYDRATE
     Dosage: UNK
     Dates: start: 2015, end: 2017
  46. VICTOZA [Concomitant]
     Active Substance: LIRAGLUTIDE
     Indication: DIABETES MELLITUS
     Dosage: UNK
     Dates: start: 2011
  47. HYDROCODONE/ACETAMINOPHEN [Concomitant]
     Active Substance: ACETAMINOPHEN\HYDROCODONE
     Indication: PAIN
     Dosage: UNK
     Dates: start: 2010, end: 2015
  48. TERBINAFINE. [Concomitant]
     Active Substance: TERBINAFINE
     Indication: FUNGAL INFECTION
     Dosage: UNK
     Dates: start: 2010, end: 2015
  49. QUETIAPINE. [Concomitant]
     Active Substance: QUETIAPINE
     Indication: PSYCHOTIC DISORDER
     Dosage: UNK
     Dates: start: 2010, end: 2015
  50. FUMARATE [Concomitant]
     Indication: MINERAL SUPPLEMENTATION
     Dosage: UNK
     Dates: start: 2010, end: 2015
  51. INVOKANA [Concomitant]
     Active Substance: CANAGLIFLOZIN
     Indication: DIABETES MELLITUS
  52. DONNATAL [Concomitant]
     Active Substance: ATROPINE SULFATE\HYOSCYAMINE SULFATE\PHENOBARBITAL\SCOPOLAMINE HYDROBROMIDE
     Indication: IRRITABLE BOWEL SYNDROME
     Dosage: UNK
     Dates: start: 2015
  53. OLANZAPINE. [Concomitant]
     Active Substance: OLANZAPINE
     Dosage: UNK
     Dates: start: 2016
  54. LEVOTHYROXINE. [Concomitant]
     Active Substance: LEVOTHYROXINE
     Indication: THYROID DISORDER
     Dosage: UNK
     Dates: start: 2015, end: 2017
  55. KLOR?CON [Concomitant]
     Active Substance: POTASSIUM CHLORIDE
     Indication: MINERAL SUPPLEMENTATION
     Dosage: UNK
     Dates: start: 2015, end: 2017
  56. PROAIR HFA [Concomitant]
     Active Substance: ALBUTEROL SULFATE
     Dosage: UNK
  57. FUROSEMIDE. [Concomitant]
     Active Substance: FUROSEMIDE
     Indication: HYPERTENSION
     Dosage: UNK
     Dates: start: 2017
  58. CHLORTHALIDONE. [Concomitant]
     Active Substance: CHLORTHALIDONE
     Indication: BLOOD PRESSURE MEASUREMENT
     Dosage: UNK
     Dates: start: 2010, end: 2015
  59. LISINOPRIL. [Concomitant]
     Active Substance: LISINOPRIL
     Indication: HYPERTENSION
     Dosage: UNK
     Dates: start: 2010, end: 2015
  60. ZANTAC [Concomitant]
     Active Substance: RANITIDINE HYDROCHLORIDE
     Dosage: UNK
     Dates: start: 2016
  61. CEPHALEXINE [Concomitant]
     Active Substance: CEPHALEXIN
  62. PROTONIX [Suspect]
     Active Substance: PANTOPRAZOLE SODIUM
     Indication: GASTROOESOPHAGEAL REFLUX DISEASE
  63. NEXIUM [Suspect]
     Active Substance: ESOMEPRAZOLE MAGNESIUM
     Indication: ABDOMINAL PAIN UPPER
     Dosage: UNK
     Route: 048
     Dates: start: 2010
  64. FEXOFENADINE HCL [Concomitant]
     Active Substance: FEXOFENADINE HYDROCHLORIDE
     Indication: HYPERSENSITIVITY
     Dosage: UNK
     Dates: start: 2010, end: 2015
  65. CYMBALTA [Concomitant]
     Active Substance: DULOXETINE HYDROCHLORIDE
     Indication: PAIN
  66. NITROSTAT [Concomitant]
     Active Substance: NITROGLYCERIN
     Indication: VASODILATATION
     Dosage: UNK
     Dates: start: 2010, end: 2015
  67. NITROSTAT [Concomitant]
     Active Substance: NITROGLYCERIN
     Dosage: UNK
     Dates: start: 2015, end: 2017
  68. CARVEDILOL. [Concomitant]
     Active Substance: CARVEDILOL
     Dosage: UNK
     Dates: start: 2015, end: 2017
  69. CIPROFLOXACIN HCL [Concomitant]
     Active Substance: CIPROFLOXACIN HYDROCHLORIDE
     Indication: ANTIBIOTIC THERAPY
     Dosage: UNK
     Dates: start: 2010, end: 2015
  70. SIMCOR [Concomitant]
     Active Substance: NIACIN\SIMVASTATIN
     Indication: BLOOD CHOLESTEROL ABNORMAL
     Dosage: UNK
     Dates: start: 2010, end: 2015
  71. INVOKANA [Concomitant]
     Active Substance: CANAGLIFLOZIN
     Indication: ANTIBIOTIC THERAPY
     Dosage: UNK
     Dates: start: 2010, end: 2015
  72. STARLIX [Concomitant]
     Active Substance: NATEGLINIDE
     Indication: DIABETES MELLITUS
     Dosage: UNK
     Dates: start: 2010, end: 2015
  73. OLANZAPINE. [Concomitant]
     Active Substance: OLANZAPINE
     Indication: PSYCHOTIC DISORDER
     Dosage: UNK
     Dates: start: 2015, end: 2017
  74. ISOSORBIDE MONONITRATE. [Concomitant]
     Active Substance: ISOSORBIDE MONONITRATE
     Indication: ANGINA PECTORIS
  75. ACETAMINOPHEN AND CODEINE [Concomitant]
     Active Substance: ACETAMINOPHEN\CODEINE PHOSPHATE
     Indication: PAIN
     Dosage: UNK
     Dates: start: 2015, end: 2017
  76. SUCRALFATE. [Concomitant]
     Active Substance: SUCRALFATE
     Indication: INTESTINAL ULCER
  77. ALAHIST DM [Concomitant]
     Active Substance: BROMPHENIRAMINE MALEATE\DEXTROMETHORPHAN HYDROBROMIDE\PHENYLEPHRINE HYDROCHLORIDE
     Indication: NASOPHARYNGITIS
  78. LISINOPRIL. [Concomitant]
     Active Substance: LISINOPRIL
     Dosage: UNK
     Dates: start: 2015, end: 2017
  79. LINACLOTIDE [Concomitant]
     Active Substance: LINACLOTIDE
     Indication: IRRITABLE BOWEL SYNDROME
     Dosage: UNK
     Dates: start: 2010, end: 2015
  80. MOXIFLOXACIN HYDROCHLORIDE. [Concomitant]
     Active Substance: MOXIFLOXACIN HYDROCHLORIDE
     Indication: ANTIBIOTIC THERAPY
     Dosage: UNK
     Dates: start: 2010, end: 2015
  81. CHLOREX?A [CHLORPHENAMINE TANNATE;MEPYRAMINE TANNATE;PHENYLEPHRINE TAN [Concomitant]
  82. PANTOPRAZOLE [Suspect]
     Active Substance: PANTOPRAZOLE
     Indication: GASTROOESOPHAGEAL REFLUX DISEASE
  83. PRAVASTATIN SODIUM. [Concomitant]
     Active Substance: PRAVASTATIN SODIUM
     Dosage: UNK
     Dates: start: 2010, end: 2015
  84. SPIRONOLACTONE. [Concomitant]
     Active Substance: SPIRONOLACTONE
     Indication: HYPERTENSION
     Dosage: UNK
     Dates: start: 2010, end: 2015
  85. NORTRIPTYLINE HCL [Concomitant]
     Active Substance: NORTRIPTYLINE HYDROCHLORIDE
     Indication: DEPRESSION
     Dosage: UNK
     Dates: start: 2010, end: 2015
  86. VENTOLIN HFA [Concomitant]
     Active Substance: ALBUTEROL SULFATE
     Indication: RESPIRATION ABNORMAL
     Dosage: UNK
     Dates: start: 2010, end: 2015
  87. CLINDAMYCIN. [Concomitant]
     Active Substance: CLINDAMYCIN
     Indication: ANTIBIOTIC THERAPY
     Dosage: UNK
     Dates: start: 2011
  88. LYRICA [Concomitant]
     Active Substance: PREGABALIN
     Indication: NEURALGIA
     Dosage: UNK
     Dates: start: 2010, end: 2015
  89. DIFIL?G [Concomitant]
     Indication: ASTHMA
     Dosage: UNK
     Dates: start: 2010, end: 2015
  90. CLONIDINE. [Concomitant]
     Active Substance: CLONIDINE
     Indication: PAIN
  91. ISOSORBIDE MONONITRATE. [Concomitant]
     Active Substance: ISOSORBIDE MONONITRATE
     Indication: ANGINA PECTORIS
     Dosage: UNK
     Dates: start: 2015, end: 2017
  92. SUCRALFATE. [Concomitant]
     Active Substance: SUCRALFATE
     Indication: ULCER
  93. ATORVASTATIN [Concomitant]
     Active Substance: ATORVASTATIN
     Indication: BLOOD CHOLESTEROL
     Dosage: UNK
     Dates: start: 2016, end: 2017
  94. BENZONATATE. [Concomitant]
     Active Substance: BENZONATATE
     Indication: COUGH
     Dosage: UNK
     Dates: start: 2010, end: 2015
  95. BENZONATATE. [Concomitant]
     Active Substance: BENZONATATE
     Dosage: UNK
     Dates: start: 2015
  96. CHLORTHALIDONE. [Concomitant]
     Active Substance: CHLORTHALIDONE
     Indication: DIURETIC THERAPY
  97. DICLOFENAC SODIUM. [Concomitant]
     Active Substance: DICLOFENAC SODIUM
     Dosage: UNK
     Dates: start: 2010, end: 2015
  98. AMMONIUM LACTATE. [Concomitant]
     Active Substance: AMMONIUM LACTATE
     Indication: SKIN DISORDER
     Dosage: UNK
     Dates: start: 2017
  99. POTASSIUM CHLORIDE. [Concomitant]
     Active Substance: POTASSIUM CHLORIDE
     Indication: BLOOD POTASSIUM
     Dosage: UNK
     Dates: start: 2016, end: 2017
  100. LOTREL [LOTEPREDNOL ETABONATE] [Concomitant]
  101. NEXIUM [Suspect]
     Active Substance: ESOMEPRAZOLE MAGNESIUM
     Dosage: UNK
     Route: 048
     Dates: start: 2016, end: 2017
  102. PREDNISONE. [Concomitant]
     Active Substance: PREDNISONE
     Indication: INFLAMMATION
     Dosage: UNK
     Dates: start: 2010, end: 2015
  103. AUGMENTIN XR [Concomitant]
     Active Substance: AMOXICILLIN\CLAVULANATE POTASSIUM
     Indication: ANTIBIOTIC THERAPY
     Dosage: UNK
     Dates: start: 2010, end: 2015
  104. CLONIDINE HCL [Concomitant]
     Active Substance: CLONIDINE HYDROCHLORIDE
     Indication: PAIN
     Dosage: UNK
     Dates: start: 2002, end: 2010
  105. HYDROCHLOROTHIAZIDE. [Concomitant]
     Active Substance: HYDROCHLOROTHIAZIDE
     Indication: HYPERTENSION
     Dosage: UNK
     Dates: start: 2010, end: 2015
  106. CARVEDILOL. [Concomitant]
     Active Substance: CARVEDILOL
     Dosage: UNK
     Dates: start: 2015
  107. SPIRIVA [Concomitant]
     Active Substance: TIOTROPIUM BROMIDE MONOHYDRATE
     Dosage: UNK
     Dates: start: 2010, end: 2015
  108. NOVOFINE [Concomitant]
     Active Substance: INSULIN NOS
     Indication: DIABETES MELLITUS
     Dosage: UNK
     Dates: start: 2010, end: 2015
  109. ECONAZOLE NITRATE. [Concomitant]
     Active Substance: ECONAZOLE NITRATE
     Indication: FUNGAL INFECTION
     Dosage: UNK
     Dates: start: 2010, end: 2015
  110. NORTRIPTYLINE [Concomitant]
     Active Substance: NORTRIPTYLINE
     Indication: DEPRESSION
     Dosage: UNK
     Dates: start: 2010, end: 2015
  111. TAMIFLU [Concomitant]
     Active Substance: OSELTAMIVIR PHOSPHATE
     Indication: ANTIVIRAL TREATMENT
     Dosage: UNK
     Dates: start: 2010, end: 2015
  112. CELEBREX [Concomitant]
     Active Substance: CELECOXIB
     Dosage: UNK
     Dates: start: 2010, end: 2015
  113. DOXEPIN [Concomitant]
     Active Substance: DOXEPIN
     Indication: PRURITUS
     Dosage: UNK
     Dates: start: 2015, end: 2017
  114. DEXAMETHASONE. [Concomitant]
     Active Substance: DEXAMETHASONE
     Indication: INFLAMMATION
     Dosage: UNK
     Dates: start: 2015
  115. AZITHROMYCIN ANHYDROUS. [Concomitant]
     Active Substance: AZITHROMYCIN ANHYDROUS
     Indication: ANTIBIOTIC THERAPY
     Dosage: UNK
     Dates: start: 2015
  116. ALENDRONATE [Concomitant]
     Active Substance: ALENDRONATE SODIUM
     Dosage: UNK
     Dates: start: 2016, end: 2017
  117. PROLENSA [Concomitant]
     Active Substance: BROMFENAC SODIUM
     Dosage: UNK
     Dates: start: 2012
  118. DIVALPROEX [Concomitant]
     Active Substance: DIVALPROEX SODIUM
     Indication: MOOD SWINGS
     Dosage: UNK
     Dates: start: 2016, end: 2017
  119. CODEINE [Concomitant]
     Active Substance: CODEINE
     Indication: PAIN
     Dosage: UNK
     Dates: start: 2010, end: 2015
  120. AUGMENTIN [Concomitant]
     Active Substance: AMOXICILLIN\CLAVULANATE POTASSIUM
     Indication: ANTIBIOTIC THERAPY
     Dosage: UNK
     Dates: start: 2010, end: 2015
  121. CANAGLIFLOZIN [Concomitant]
     Active Substance: CANAGLIFLOZIN
     Indication: DIABETES MELLITUS
     Dosage: UNK
     Dates: start: 2010, end: 2015
  122. CLINDAMYCIN. [Concomitant]
     Active Substance: CLINDAMYCIN
     Dosage: UNK
     Dates: start: 2015, end: 2017
  123. DIVALPREX [Concomitant]
     Indication: MOOD SWINGS
     Dosage: UNK
  124. SULFAMETHOXAZOLE AND TRIMETHOPRIM [Concomitant]
     Active Substance: SULFAMETHOXAZOLE\TRIMETHOPRIM
     Indication: ANTIBIOTIC THERAPY
     Dosage: UNK
     Dates: start: 2010, end: 2015
  125. DOXYCYCLINE. [Concomitant]
     Active Substance: DOXYCYCLINE
  126. JANUVIA [Concomitant]
     Active Substance: SITAGLIPTIN PHOSPHATE
     Dosage: UNK
     Dates: start: 2015, end: 2017
  127. TRAZODONE HYDROCHLORIDE. [Concomitant]
     Active Substance: TRAZODONE HYDROCHLORIDE
     Indication: DEPRESSION
     Dosage: UNK
     Dates: start: 2010, end: 2015
  128. NITROGLYCERIN. [Concomitant]
     Active Substance: NITROGLYCERIN
     Indication: ANGINA PECTORIS
     Dosage: UNK
     Dates: start: 2010, end: 2015
  129. PROAIR HFA [Concomitant]
     Active Substance: ALBUTEROL SULFATE
     Dosage: UNK
     Dates: start: 2010, end: 2015
  130. POLY HIST FORTE [Concomitant]
     Active Substance: PHENYLEPHRINE HYDROCHLORIDE\PYRILAMINE MALEATE
     Indication: ANTIALLERGIC THERAPY
     Dosage: UNK
     Dates: start: 2010, end: 2015
  131. SULFAMETHOXAZOLE W/TRIMETHOPRIM [Concomitant]
     Active Substance: SULFAMETHOXAZOLE\TRIMETHOPRIM
     Indication: ANTIBIOTIC THERAPY
     Dosage: UNK
     Dates: start: 2002, end: 2010
  132. PANTOPRAZOLE SODIUM. [Concomitant]
     Active Substance: PANTOPRAZOLE SODIUM
     Indication: GASTROOESOPHAGEAL REFLUX DISEASE
     Dosage: UNK
     Dates: start: 2010, end: 2015
  133. PEG 3350 [Concomitant]
     Active Substance: POLYETHYLENE GLYCOL 3350
     Indication: LAXATIVE SUPPORTIVE CARE
     Dosage: UNK
     Dates: start: 2012
  134. PENNSAID [Concomitant]
     Active Substance: DICLOFENAC SODIUM
     Dosage: UNK
     Dates: start: 2010, end: 2015
  135. DONNATAL [Concomitant]
     Active Substance: ATROPINE SULFATE\HYOSCYAMINE SULFATE\PHENOBARBITAL\SCOPOLAMINE HYDROBROMIDE
     Indication: GASTROINTESTINAL PAIN
  136. ISOSORBIDE. [Concomitant]
     Active Substance: ISOSORBIDE
     Indication: ANGINA PECTORIS
     Dosage: UNK
     Dates: start: 2016, end: 2017
  137. CALCITROL [Concomitant]
     Active Substance: CALCITRIOL
     Indication: BONE DISORDER
     Dosage: UNK
     Dates: start: 2017
  138. BUMETANIDE. [Concomitant]
     Active Substance: BUMETANIDE
     Indication: HYPERTENSION
     Dosage: UNK
     Dates: start: 2017
  139. NYSTATIN. [Concomitant]
     Active Substance: NYSTATIN
     Indication: FUNGAL INFECTION
     Dosage: UNK
     Dates: start: 2017
  140. CEFDINIR. [Concomitant]
     Active Substance: CEFDINIR
     Indication: ANTIBIOTIC THERAPY
     Dosage: UNK
     Dates: start: 2016, end: 2017
  141. AMLODIPINE BESILATE [Concomitant]
     Active Substance: AMLODIPINE BESYLATE
     Indication: HYPERTENSION
     Dosage: UNK
     Dates: start: 2017
  142. AMOX/K CLAV [Concomitant]
     Active Substance: AMOXICILLIN\CLAVULANATE POTASSIUM
     Indication: ANTIBIOTIC THERAPY
     Dosage: UNK
     Dates: start: 2010, end: 2015
  143. MUCINEX [Concomitant]
     Active Substance: GUAIFENESIN
     Indication: COUGH
     Dosage: UNK
     Dates: start: 2010, end: 2015
  144. CLAVULANATE POTASSIUM [Concomitant]
     Active Substance: CLAVULANATE POTASSIUM
     Indication: ANTIBIOTIC THERAPY
     Dosage: UNK
     Dates: start: 2010, end: 2015
  145. PROTONIX [Suspect]
     Active Substance: PANTOPRAZOLE SODIUM
     Indication: ABDOMINAL PAIN UPPER
     Dosage: UNK
     Route: 048
     Dates: start: 2015, end: 2016
  146. PREVACID [Suspect]
     Active Substance: LANSOPRAZOLE
     Indication: DYSPEPSIA
     Dosage: UNK
     Route: 048
     Dates: start: 2017
  147. AMOX TR?POTASSIUM CLAVULANATE [Concomitant]
     Indication: ANTIBIOTIC THERAPY
     Dosage: UNK
     Dates: start: 2010, end: 2015
  148. SAVELLA [Concomitant]
     Active Substance: MILNACIPRAN HYDROCHLORIDE
     Indication: FIBROMYALGIA
  149. LEXAPRO [Concomitant]
     Active Substance: ESCITALOPRAM OXALATE
     Indication: DEPRESSION
     Dosage: UNK
     Dates: start: 2010, end: 2015
  150. GLIMEPIRIDE. [Concomitant]
     Active Substance: GLIMEPIRIDE
     Dosage: UNK
     Dates: start: 2010, end: 2015
  151. CYMBALTA [Concomitant]
     Active Substance: DULOXETINE HYDROCHLORIDE
     Indication: DEPRESSION
     Dosage: UNK
     Dates: start: 2010, end: 2015
  152. LEVAQUIN [Concomitant]
     Active Substance: LEVOFLOXACIN
     Indication: ANTIBIOTIC THERAPY
     Dosage: UNK
     Dates: start: 2010, end: 2015
  153. CARVEDILOL. [Concomitant]
     Active Substance: CARVEDILOL
     Indication: HYPERTENSION
     Dosage: UNK
     Dates: start: 2010, end: 2015
  154. CLAVULANATE [Concomitant]
     Active Substance: CLAVULANIC ACID
     Indication: ANTIBIOTIC THERAPY
     Dosage: UNK
     Dates: start: 2010, end: 2015
  155. SULFAMETHOXAZOLE W/TRIMETHOPRIM [Concomitant]
     Active Substance: SULFAMETHOXAZOLE\TRIMETHOPRIM
     Dosage: UNK
     Dates: start: 2010, end: 2015
  156. CERON DM [Concomitant]
     Active Substance: CHLORPHENIRAMINE MALEATE\DEXTROMETHORPHAN HYDROBROMIDE\PHENYLEPHRINE HYDROCHLORIDE
     Indication: HYPERSENSITIVITY
     Dosage: UNK
     Dates: start: 2010, end: 2015
  157. PROVENTIL [Concomitant]
     Active Substance: ALBUTEROL
     Dosage: UNK
     Dates: start: 2015, end: 2017
  158. FAMOTIDINE. [Concomitant]
     Active Substance: FAMOTIDINE
     Indication: INTESTINAL ULCER
     Dosage: UNK
     Dates: start: 2016, end: 2017
  159. HYDRALAZINE [Concomitant]
     Active Substance: HYDRALAZINE HYDROCHLORIDE
     Dosage: UNK
     Dates: start: 2016, end: 2017
  160. FUROSEMIDE. [Concomitant]
     Active Substance: FUROSEMIDE
     Dosage: UNK
     Dates: start: 2017
  161. NITROGLYCERINE [Concomitant]
     Active Substance: NITROGLYCERIN
     Dosage: UNK
     Dates: start: 2015, end: 2017
  162. ALAHIST DM [Concomitant]
     Active Substance: BROMPHENIRAMINE MALEATE\DEXTROMETHORPHAN HYDROBROMIDE\PHENYLEPHRINE HYDROCHLORIDE
     Indication: HYPERSENSITIVITY
     Dosage: UNK
     Dates: start: 2010, end: 2015
  163. DICYCLOMINE [Concomitant]
     Active Substance: DICYCLOMINE HYDROCHLORIDE
     Indication: GASTROINTESTINAL DISORDER
     Dosage: UNK
     Dates: start: 2015
  164. CYCLOBENZAPRINE. [Concomitant]
     Active Substance: CYCLOBENZAPRINE
     Indication: MUSCLE RELAXANT THERAPY
     Dosage: UNK
  165. OSELTAMIVIR PHOSPHATE. [Concomitant]
     Active Substance: OSELTAMIVIR PHOSPHATE
     Indication: VIRAL INFECTION
     Dosage: UNK
     Dates: start: 2010, end: 2015
  166. TAGAMET [Concomitant]
     Active Substance: CIMETIDINE
     Dosage: UNK

REACTIONS (5)
  - Chronic kidney disease [Not Recovered/Not Resolved]
  - Renal failure [Unknown]
  - Gastric ulcer [Not Recovered/Not Resolved]
  - Renal injury [Not Recovered/Not Resolved]
  - Suicidal ideation [Unknown]

NARRATIVE: CASE EVENT DATE: 2015
